FAERS Safety Report 6735071-0 (Version None)
Quarter: 2010Q2

REPORT INFORMATION
  Report Type: 
  Country: None (occurrence: None)
  Receive Date: 20100521
  Receipt Date: 20100510
  Transmission Date: 20101027
  Serious: Yes (Other)
  Sender: FDA-Public Use
  Company Number: US-JNJFOC-20100405543

PATIENT
  Age: 92 Year
  Sex: Female
  Weight: 54.43 kg

DRUGS (13)
  1. EXTRA STRENGTH TYLENOL [Suspect]
     Route: 048
  2. EXTRA STRENGTH TYLENOL [Suspect]
     Indication: ARTHRALGIA
     Dosage: ^500 MG, SOMETIMES 1000 MG, 1-2 TIMES DAILY^
     Route: 048
  3. QVAR 40 [Concomitant]
     Indication: EMPHYSEMA
     Dosage: ^FOR YEARS^
  4. QVAR 40 [Concomitant]
     Indication: ASTHMA
     Dosage: ^FOR YEARS^
  5. QVAR 40 [Concomitant]
     Indication: CHRONIC OBSTRUCTIVE PULMONARY DISEASE
     Dosage: ^FOR YEARS^
  6. COUMADIN [Concomitant]
     Indication: ANTICOAGULANT THERAPY
     Dosage: 5 MG, DAILY, 4DAYS/WEEK, ^FOR YEARS^  2.5 MG, DAILY, 3 DAYS/WEEK ^FOR YEARS^
  7. DILTIAZEM HCL [Concomitant]
     Indication: HYPERTENSION
     Dosage: ^FOR YEARS^
  8. CALTRATE [Concomitant]
     Indication: MINERAL SUPPLEMENTATION
     Dosage: ^FOR YEARS^
  9. M.V.I. [Concomitant]
     Indication: VITAMIN SUPPLEMENTATION
     Dosage: ^FOR YEARS^
  10. CLONAZEPAM [Concomitant]
     Indication: INSOMNIA
  11. ALBUTEROL [Concomitant]
     Indication: EMPHYSEMA
     Dosage: ^FOR YEARS^
  12. ALBUTEROL [Concomitant]
     Indication: ASTHMA
     Dosage: ^FOR YEARS^
  13. ALBUTEROL [Concomitant]
     Indication: CHRONIC OBSTRUCTIVE PULMONARY DISEASE
     Dosage: ^FOR YEARS^

REACTIONS (1)
  - BLOOD PRESSURE INCREASED [None]
